FAERS Safety Report 4825034-4 (Version None)
Quarter: 2005Q4

REPORT INFORMATION
  Report Type: 
  Country: None (occurrence: None)
  Receive Date: 20051014
  Receipt Date: 20050809
  Transmission Date: 20060501
  Serious: No
  Sender: FDA-Public Use
  Company Number: 2005SP002288

PATIENT
  Age: 83 Year
  Sex: Female
  Weight: 54.4316 kg

DRUGS (3)
  1. LUNESTA [Suspect]
     Indication: INSOMNIA
     Dosage: 1 MG;HS;ORAL
     Route: 048
     Dates: start: 20050501, end: 20050501
  2. LISINOPRIL [Concomitant]
  3. HYDROCHLOROTHIAZIDE [Concomitant]

REACTIONS (5)
  - DRUG INEFFECTIVE [None]
  - FATIGUE [None]
  - FEELING ABNORMAL [None]
  - INSOMNIA [None]
  - MUSCLE TWITCHING [None]
